FAERS Safety Report 17071983 (Version 1)
Quarter: 2019Q4

REPORT INFORMATION
  Report Type: Spontaneous
  Country: US (occurrence: US)
  Receive Date: 20191125
  Receipt Date: 20191125
  Transmission Date: 20200122
  Serious: Yes (Other)
  Sender: FDA-Public Use
  Company Number: US-SA-2019SA320483

PATIENT
  Sex: Female

DRUGS (5)
  1. SPIRIVA COMBI [Concomitant]
     Active Substance: TIOTROPIUM BROMIDE
     Dosage: 18 UG
     Route: 065
  2. VITAMIN D3 [Concomitant]
     Active Substance: CHOLECALCIFEROL
     Dosage: 25 UG
     Route: 065
  3. THYROGEN [Suspect]
     Active Substance: THYROTROPIN ALFA
     Indication: BREAST CANCER
     Dosage: 0.9 MG, QD
     Route: 030
  4. IBRANCE [Concomitant]
     Active Substance: PALBOCICLIB
     Route: 065
  5. CALCIUM CARBONATE. [Concomitant]
     Active Substance: CALCIUM CARBONATE
     Route: 065

REACTIONS (1)
  - Thrombosis [Unknown]
